FAERS Safety Report 23822774 (Version 2)
Quarter: 2024Q2

REPORT INFORMATION
  Report Type: Spontaneous
  Country: US (occurrence: US)
  Receive Date: 20240506
  Receipt Date: 20240506
  Transmission Date: 20240716
  Serious: Yes (Hospitalization, Other)
  Sender: FDA-Public Use
  Company Number: US-GILEAD-2024-0671522

PATIENT
  Sex: Male

DRUGS (3)
  1. EPCLUSA [Suspect]
     Active Substance: SOFOSBUVIR\VELPATASVIR
     Indication: Chronic hepatitis C
     Dosage: 1 DOSAGE FORM, QD
     Route: 048
     Dates: end: 202309
  2. MIRTAZAPINE [Concomitant]
     Active Substance: MIRTAZAPINE
  3. HYDROXYZINE HYDROCHLORIDE [Concomitant]
     Active Substance: HYDROXYZINE HYDROCHLORIDE

REACTIONS (3)
  - Pancreatitis [Unknown]
  - Staphylococcal infection [Unknown]
  - Product dose omission in error [Unknown]
